FAERS Safety Report 5281829-7 (Version None)
Quarter: 2007Q1

REPORT INFORMATION
  Report Type: 
  Country: None (occurrence: None)
  Receive Date: 20070326
  Receipt Date: 20070313
  Transmission Date: 20070707
  Serious: Yes (Death)
  Sender: FDA-Public Use
  Company Number: 238566

PATIENT
  Age: 63 Year
  Sex: Female

DRUGS (2)
  1. RITUXAN [Suspect]
     Indication: PEMPHIGOID
     Dosage: 375 MG, 1/WEEK, INTRAVENOUS
     Route: 042
  2. PREDNISOLONE [Concomitant]

REACTIONS (2)
  - CLOSTRIDIAL INFECTION [None]
  - PNEUMONIA BACTERIAL [None]
